FAERS Safety Report 16188559 (Version 2)
Quarter: 2019Q2

REPORT INFORMATION
  Report Type: Report from Study
  Country: HN (occurrence: HN)
  Receive Date: 20190412
  Receipt Date: 20190430
  Transmission Date: 20190711
  Serious: Yes (Death, Hospitalization)
  Sender: FDA-Public Use
  Company Number: PHHY2019HN083916

PATIENT
  Age: 77 Year
  Sex: Male

DRUGS (2)
  1. VYMADA [Suspect]
     Active Substance: SACUBITRIL\VALSARTAN
     Indication: CARDIAC DISORDER
     Dosage: 50 MG, UNK
     Route: 065
  2. VYMADA [Suspect]
     Active Substance: SACUBITRIL\VALSARTAN
     Indication: FLUID RETENTION

REACTIONS (4)
  - Malaise [Unknown]
  - Cardio-respiratory arrest [Fatal]
  - Cardiac disorder [Fatal]
  - Product use in unapproved indication [Unknown]
